FAERS Safety Report 19111869 (Version 1)
Quarter: 2021Q2

REPORT INFORMATION
  Report Type: Spontaneous
  Country: IN (occurrence: IN)
  Receive Date: 20210409
  Receipt Date: 20210409
  Transmission Date: 20210717
  Serious: Yes (Other)
  Sender: FDA-Public Use
  Company Number: None

PATIENT
  Age: 32 Year
  Sex: Male
  Weight: 62 kg

DRUGS (2)
  1. ONABET CREAM (SERTICONAOLE) [Concomitant]
     Dates: start: 20210325, end: 20210409
  2. LAMIFIN (TERBINAFINE) [Suspect]
     Active Substance: TERBINAFINE
     Indication: TINEA CRURIS
     Route: 048
     Dates: start: 20210326, end: 20210409

REACTIONS (2)
  - Tinea cruris [None]
  - Mouth ulceration [None]

NARRATIVE: CASE EVENT DATE: 20210408
